FAERS Safety Report 20186166 (Version 1)
Quarter: 2021Q4

REPORT INFORMATION
  Report Type: Other
  Country: NL (occurrence: NL)
  Receive Date: 20211215
  Receipt Date: 20211215
  Transmission Date: 20220303
  Serious: Yes (Hospitalization, Other)
  Sender: FDA-Public Use
  Company Number: None

PATIENT
  Age: 54 Year
  Sex: Female

DRUGS (3)
  1. PAROXETINE [Suspect]
     Active Substance: PAROXETINE
     Indication: Sleep disorder
     Dosage: 10 MILLIGRAM
     Route: 065
     Dates: end: 202106
  2. METHOTREXATE [Suspect]
     Active Substance: METHOTREXATE
     Indication: Systemic lupus erythematosus
     Dosage: 7.5 MILLIGRAM, Q.WK.
     Route: 065
     Dates: start: 202006, end: 20210602
  3. FOLIC ACID [Concomitant]
     Active Substance: FOLIC ACID
     Indication: Product used for unknown indication
     Dosage: 360 MG (GASTRIC OR PEPTIC ULCER: TABLET, 360 MG (MILLIGRAM))
     Route: 065

REACTIONS (22)
  - Clostridium bacteraemia [Recovering/Resolving]
  - Oropharyngeal pain [Recovering/Resolving]
  - Systemic lupus erythematosus [Recovering/Resolving]
  - Hepatic function abnormal [Recovering/Resolving]
  - Gastric ulcer [Recovering/Resolving]
  - Leukopenia [Recovering/Resolving]
  - Pyrexia [Recovering/Resolving]
  - Inappropriate antidiuretic hormone secretion [Recovering/Resolving]
  - Hyponatraemia [Recovered/Resolved]
  - Axillary pain [Recovering/Resolving]
  - Rash papular [Recovering/Resolving]
  - Cough [Recovering/Resolving]
  - Myositis [Recovering/Resolving]
  - Chills [Recovering/Resolving]
  - Arthralgia [Recovering/Resolving]
  - Malaise [Recovering/Resolving]
  - Abdominal pain [Recovering/Resolving]
  - Oral candidiasis [Recovering/Resolving]
  - Myalgia [Recovering/Resolving]
  - Fatigue [Recovering/Resolving]
  - Lymphadenitis [Recovering/Resolving]
  - Nausea [Recovered/Resolved]

NARRATIVE: CASE EVENT DATE: 20210524
